FAERS Safety Report 11233963 (Version 1)
Quarter: 2015Q3

REPORT INFORMATION
  Report Type: Spontaneous
  Country: BR (occurrence: BR)
  Receive Date: 20150702
  Receipt Date: 20150702
  Transmission Date: 20151125
  Serious: Yes (Death, Other)
  Sender: FDA-Public Use
  Company Number: BR-JNJFOC-20150621306

PATIENT
  Age: 68 Year
  Sex: Male

DRUGS (5)
  1. CABAZITAXEL [Suspect]
     Active Substance: CABAZITAXEL
     Indication: PROSTATE CANCER METASTATIC
     Route: 065
  2. PREDNISONE. [Concomitant]
     Active Substance: PREDNISONE
     Indication: PROSTATE CANCER METASTATIC
     Route: 065
     Dates: start: 20130218, end: 20140312
  3. ZOLEDRONIC ACID [Concomitant]
     Active Substance: ZOLEDRONIC ACID
     Indication: PROSTATE CANCER METASTATIC
     Route: 065
     Dates: start: 20130218
  4. PREDNISONE. [Concomitant]
     Active Substance: PREDNISONE
     Indication: PROSTATE CANCER METASTATIC
     Route: 065
     Dates: start: 20140702
  5. ZYTIGA [Suspect]
     Active Substance: ABIRATERONE ACETATE
     Indication: PROSTATE CANCER METASTATIC
     Route: 065
     Dates: start: 20130620

REACTIONS (3)
  - Drug ineffective [Unknown]
  - Prostate cancer metastatic [Fatal]
  - Bone marrow failure [Unknown]

NARRATIVE: CASE EVENT DATE: 2014
